FAERS Safety Report 4353217-9 (Version None)
Quarter: 2004Q2

REPORT INFORMATION
  Report Type: 
  Country: None (occurrence: None)
  Receive Date: 20040505
  Receipt Date: 20040115
  Transmission Date: 20050107
  Serious: Yes (Life-Threatening, Hospitalization, Disabling, Other)
  Sender: FDA-Public Use
  Company Number: PHBS2004JP00899

PATIENT
  Age: 25 Year
  Sex: Male
  Weight: 70 kg

DRUGS (8)
  1. ANAFRANIL [Suspect]
     Indication: DEPRESSION
     Dosage: 2000 MG/D
     Route: 048
     Dates: start: 20020910, end: 20020910
  2. ANAFRANIL [Suspect]
     Dosage: 75 MG/D
     Route: 048
  3. LUDIOMIL [Suspect]
     Indication: MAJOR DEPRESSION
     Dosage: 2000 MG/D
     Route: 048
     Dates: start: 20020910, end: 20020910
  4. LUDIOMIL [Suspect]
     Dosage: 75 MG/D
     Route: 048
  5. AMOXAPINE [Suspect]
     Indication: MAJOR DEPRESSION
     Dosage: 1250 MG/D
     Route: 048
  6. AMOXAPINE [Suspect]
     Dosage: UNK, UNK
     Route: 048
  7. ROHYPNOL [Concomitant]
     Indication: MAJOR DEPRESSION
     Dosage: 1 MG, QD
     Route: 048
     Dates: start: 20020910, end: 20020910
  8. ETIZOLAM [Concomitant]
     Indication: MAJOR DEPRESSION
     Dosage: .5 MG, QD
     Route: 048
     Dates: start: 20020910, end: 20020910

REACTIONS (13)
  - ANXIETY [None]
  - BLOOD PRESSURE DIASTOLIC DECREASED [None]
  - BLOOD PRESSURE SYSTOLIC DECREASED [None]
  - DEPRESSED LEVEL OF CONSCIOUSNESS [None]
  - HALLUCINATION [None]
  - HEART RATE DECREASED [None]
  - HEART RATE INCREASED [None]
  - HYPOTENSION [None]
  - MYDRIASIS [None]
  - OVERDOSE [None]
  - QRS AXIS ABNORMAL [None]
  - SOMNOLENCE [None]
  - STATUS EPILEPTICUS [None]
